FAERS Safety Report 4567430-9 (Version None)
Quarter: 2005Q1

REPORT INFORMATION
  Report Type: 
  Country: None (occurrence: None)
  Receive Date: 20050127
  Receipt Date: 20050117
  Transmission Date: 20050727
  Serious: Yes (Hospitalization)
  Sender: FDA-Public Use
  Company Number: HQWYE654817JAN05

PATIENT
  Age: 55 Year
  Sex: Male

DRUGS (8)
  1. CORDARONE [Suspect]
     Dosage: 200 MG
     Route: 048
     Dates: start: 20040605
  2. CELLCEPT [Suspect]
     Route: 048
     Dates: start: 20040705
  3. LANSOPRAZOLE [Suspect]
     Dosage: 30 MG 1X PER 1 DAY
     Route: 048
     Dates: start: 20040205, end: 20040101
  4. CYCLOPHOSPHAMIDE [Concomitant]
  5. PREDNISOLONE [Concomitant]
  6. MOVICOL [Concomitant]
  7. POTASSIUM CHLORIDE [Concomitant]
  8. PREVISCAN            (FLUINDIONE) [Concomitant]

REACTIONS (3)
  - BLOOD PROLACTIN INCREASED [None]
  - GYNAECOMASTIA [None]
  - TUMOUR MARKER INCREASED [None]
